FAERS Safety Report 4464754-0 (Version None)
Quarter: 2004Q4

REPORT INFORMATION
  Report Type: 
  Country: None (occurrence: None)
  Receive Date: 20041004
  Receipt Date: 20040721
  Transmission Date: 20050328
  Serious: No
  Sender: FDA-Public Use
  Company Number: 377670

PATIENT
  Age: 74 Year
  Sex: Male

DRUGS (7)
  1. COREG [Suspect]
     Indication: ILL-DEFINED DISORDER
     Dosage: 25MG TWICE PER DAY
     Route: 048
     Dates: start: 20040130
  2. SYNTHROID [Concomitant]
  3. ZOCOR [Concomitant]
  4. PRILOSEC [Concomitant]
  5. LISINOPRIL [Concomitant]
  6. DYAZIDE [Concomitant]
  7. VIAGRA [Concomitant]

REACTIONS (1)
  - DYSPNOEA [None]
